FAERS Safety Report 9849407 (Version 2)
Quarter: 2014Q1

REPORT INFORMATION
  Report Type: Spontaneous
  Country: JP (occurrence: JP)
  Receive Date: 20140128
  Receipt Date: 20140204
  Transmission Date: 20141002
  Serious: Yes (Other)
  Sender: FDA-Public Use
  Company Number: JP-PFIZER INC-2014020195

PATIENT
  Age: 62 Year
  Sex: Female
  Weight: 50 kg

DRUGS (3)
  1. PREGABALIN [Suspect]
     Indication: ERYTHROMELALGIA
     Dosage: 150 MG/ DAY
     Route: 048
  2. DUROTEP [Concomitant]
     Indication: PAIN
     Dosage: UNK
     Route: 062
  3. FENTANYL [Concomitant]
     Indication: PAIN
     Dosage: UNK
     Route: 042

REACTIONS (5)
  - Off label use [Unknown]
  - Hallucination [Recovered/Resolved]
  - Mental disorder [Recovered/Resolved]
  - Pre-existing condition improved [Unknown]
  - Therapeutic response unexpected [Unknown]
